FAERS Safety Report 23048340 (Version 4)
Quarter: 2023Q4

REPORT INFORMATION
  Report Type: Spontaneous
  Country: JP (occurrence: JP)
  Receive Date: 20231010
  Receipt Date: 20231218
  Transmission Date: 20240109
  Serious: Yes (Death, Hospitalization, Other)
  Sender: FDA-Public Use
  Company Number: JP-SA-2023SA300311

PATIENT
  Age: 76 Year
  Sex: Female
  Weight: 62.4 kg

DRUGS (16)
  1. ENJAYMO [Suspect]
     Active Substance: SUTIMLIMAB-JOME
     Indication: Cold type haemolytic anaemia
     Dosage: DAILY DOSE: 6.5 G, QOW
     Route: 041
     Dates: start: 20230704, end: 20230926
  2. ENJAYMO [Suspect]
     Active Substance: SUTIMLIMAB-JOME
     Dosage: DAILY DOSE: 6.5 G, 1X
     Route: 041
     Dates: start: 20230613, end: 20230613
  3. ENJAYMO [Suspect]
     Active Substance: SUTIMLIMAB-JOME
     Dosage: DAILY DOSE: 6.5 G, 1X
     Route: 041
     Dates: start: 20230620, end: 20230620
  4. SULFAMETHOXAZOLE\TRIMETHOPRIM [Concomitant]
     Active Substance: SULFAMETHOXAZOLE\TRIMETHOPRIM
     Indication: Product used for unknown indication
     Dosage: 0.5 DF, QD, AFTER BREAKFAST, 28 DAYS
     Route: 065
     Dates: start: 20230815, end: 20230911
  5. SULFAMETHOXAZOLE\TRIMETHOPRIM [Concomitant]
     Active Substance: SULFAMETHOXAZOLE\TRIMETHOPRIM
     Dosage: 0.5 DF, QD, AFTER BREAKFAST, 28 DAYS
     Route: 065
     Dates: start: 20230912
  6. FLUCONAZOLE [Concomitant]
     Active Substance: FLUCONAZOLE
     Indication: Product used for unknown indication
     Dosage: 1 CP, QD, AFTER BREAKFAST, 28 DAYS
     Route: 065
     Dates: start: 20230815, end: 20230911
  7. FLUCONAZOLE [Concomitant]
     Active Substance: FLUCONAZOLE
     Dosage: 1 CP, QD, AFTER BREAKFAST, 28 DAYS
     Route: 065
     Dates: start: 20230912
  8. AMLODIPINE BESYLATE [Concomitant]
     Active Substance: AMLODIPINE BESYLATE
     Indication: Product used for unknown indication
     Dosage: 1 DF, QD, AFTER BREAKFAST, 28 DAYS
     Route: 065
     Dates: start: 20230815, end: 20230911
  9. AMLODIPINE BESYLATE [Concomitant]
     Active Substance: AMLODIPINE BESYLATE
     Dosage: 1 DF, QD, AFTER BREAKFAST, 28 DAYS
     Route: 065
     Dates: start: 20230912
  10. PITAVASTATIN CALCIUM [Concomitant]
     Active Substance: PITAVASTATIN CALCIUM
     Indication: Product used for unknown indication
     Dosage: 1 DF, QD, AFTER DINNER, 28 DAYS
     Route: 065
     Dates: start: 20230815, end: 20230911
  11. PITAVASTATIN CALCIUM [Concomitant]
     Active Substance: PITAVASTATIN CALCIUM
     Dosage: 1 DF, QD, AFTER DINNER, 28 DAYS
     Route: 065
     Dates: start: 20230912
  12. ALENDRONATE [Concomitant]
     Active Substance: ALENDRONATE SODIUM
     Indication: Product used for unknown indication
     Dosage: 1 DF (ONCE A DAY), QW, AT THE TIME OF AWAKENING, 4 DAYS
     Route: 065
     Dates: start: 20230815, end: 20230911
  13. ALENDRONATE [Concomitant]
     Active Substance: ALENDRONATE SODIUM
     Dosage: 1 DF (ONCE A DAY), QW (EVERY FRIDAY), AT THE TIME OF AWAKENING, 4 DAYS
     Route: 065
     Dates: start: 20230912
  14. PREDNISOLONE [Concomitant]
     Active Substance: PREDNISOLONE
     Indication: Product used for unknown indication
     Dosage: 3 DF, QD, AFTER BREAKFAST, 28 DAYS
     Route: 065
     Dates: start: 20230912
  15. PREDNISOLONE [Concomitant]
     Active Substance: PREDNISOLONE
     Indication: Product used for unknown indication
     Dosage: 2 DF, QD, AFTER BREAKFAST, 28 DAYS
     Route: 065
     Dates: start: 20230912
  16. LANSOPRAZOLE [Concomitant]
     Active Substance: LANSOPRAZOLE
     Indication: Product used for unknown indication
     Dosage: 1 DF, QD, AFTER BREAKFAST, 28 DAYS
     Route: 065
     Dates: start: 20230912

REACTIONS (2)
  - Pulmonary embolism [Fatal]
  - Cerebral infarction [Fatal]

NARRATIVE: CASE EVENT DATE: 20231003
